FAERS Safety Report 10985020 (Version 1)
Quarter: 2015Q2

REPORT INFORMATION
  Report Type: Report from Study
  Country: US (occurrence: US)
  Receive Date: 20150403
  Receipt Date: 20150403
  Transmission Date: 20150821
  Serious: Yes (Life-Threatening, Hospitalization)
  Sender: FDA-Public Use
  Company Number: US-ASTRAZENECA-2015SE31416

PATIENT
  Age: 61 Year
  Sex: Female
  Weight: 82.4 kg

DRUGS (20)
  1. BLINDED UNSPECIFIED DRUG [Suspect]
     Active Substance: UNSPECIFIED INGREDIENT
     Indication: RHEUMATOID ARTHRITIS
     Route: 048
     Dates: start: 20140617, end: 20150322
  2. GARLIC. [Concomitant]
     Active Substance: GARLIC
     Dates: start: 2004
  3. PEPCID [Concomitant]
     Active Substance: FAMOTIDINE
  4. SYNTHROID [Concomitant]
     Active Substance: LEVOTHYROXINE SODIUM
     Dates: start: 2007
  5. PREDNISONE. [Concomitant]
     Active Substance: PREDNISONE
     Dates: start: 20140418
  6. MELATONIN [Concomitant]
     Active Substance: MELATONIN
     Dates: start: 2004
  7. LOSARTAN [Concomitant]
     Active Substance: LOSARTAN
     Dates: start: 2012
  8. OMEGA 3 [Concomitant]
     Active Substance: OMEGA-3 FATTY ACIDS
     Dates: start: 2010
  9. VITAMIN E [Concomitant]
     Active Substance: .ALPHA.-TOCOPHEROL
     Dates: start: 2013
  10. GLUCOSAMINE AND CHONDROITIN [Concomitant]
     Dates: start: 2013
  11. FULVESTRANT [Suspect]
     Active Substance: FULVESTRANT
     Indication: RHEUMATOID ARTHRITIS
     Route: 048
     Dates: start: 20140617, end: 20150322
  12. AMBIEN [Concomitant]
     Active Substance: ZOLPIDEM TARTRATE
     Dates: start: 2007
  13. VITAMIN C [Concomitant]
     Active Substance: ASCORBIC ACID
     Dates: start: 2010
  14. MAGNESIUM [Concomitant]
     Active Substance: MAGNESIUM
     Dates: start: 2013
  15. TYLENOL [Concomitant]
     Active Substance: ACETAMINOPHEN
     Dates: start: 2004
  16. FOLIC ACID. [Concomitant]
     Active Substance: FOLIC ACID
     Dates: start: 20140617
  17. SUDAFED [Concomitant]
     Active Substance: PSEUDOEPHEDRINE HYDROCHLORIDE
     Dates: start: 20150321, end: 20150322
  18. VICKS NYQUIL [Concomitant]
     Active Substance: ACETAMINOPHEN\DEXTROMETHORPHAN HYDROBROMIDE\DOXYLAMINE SUCCINATE
     Dates: start: 20150321, end: 20150322
  19. VITAMIN D [Concomitant]
     Active Substance: CHOLECALCIFEROL
     Dates: start: 2010
  20. ALEVE [Concomitant]
     Active Substance: NAPROXEN SODIUM
     Dates: start: 201309

REACTIONS (2)
  - Meningitis bacterial [Unknown]
  - Sepsis [Unknown]

NARRATIVE: CASE EVENT DATE: 20150322
